FAERS Safety Report 17839819 (Version 6)
Quarter: 2021Q4

REPORT INFORMATION
  Report Type: Report from Study
  Country: GB (occurrence: GB)
  Receive Date: 20200529
  Receipt Date: 20211126
  Transmission Date: 20220304
  Serious: Yes (Life-Threatening, Hospitalization)
  Sender: FDA-Public Use
  Company Number: NVSC2020GB035417

PATIENT
  Age: 57 Year
  Sex: Female
  Weight: 52.6 kg

DRUGS (39)
  1. PEMETREXED DISODIUM [Suspect]
     Active Substance: PEMETREXED DISODIUM
     Indication: Non-small cell lung cancer
     Dosage: 750 MG
     Route: 042
     Dates: start: 20191220
  2. CANAKINUMAB [Suspect]
     Active Substance: CANAKINUMAB
     Indication: Non-small cell lung cancer
     Dosage: UNK
     Route: 058
     Dates: start: 20191220, end: 20200110
  3. PEMBROLIZUMAB [Suspect]
     Active Substance: PEMBROLIZUMAB
     Indication: Non-small cell lung cancer
     Dosage: 200 MG
     Route: 042
     Dates: start: 20191220
  4. PIPERACILLIN SODIUM\TAZOBACTAM SODIUM [Concomitant]
     Active Substance: PIPERACILLIN SODIUM\TAZOBACTAM SODIUM
     Indication: Dyspnoea
     Dosage: 4.5 MG
     Route: 065
     Dates: start: 20200113, end: 20200115
  5. PIPERACILLIN SODIUM\TAZOBACTAM SODIUM [Concomitant]
     Active Substance: PIPERACILLIN SODIUM\TAZOBACTAM SODIUM
     Indication: Lower respiratory tract infection
     Dosage: 4.9 G
     Route: 065
     Dates: start: 20200202, end: 20200203
  6. THYROXINE [Concomitant]
     Active Substance: LEVOTHYROXINE
     Indication: Hypothyroidism
     Dosage: UNK
     Route: 065
     Dates: start: 2015
  7. LEVOFLOXACIN [Concomitant]
     Active Substance: LEVOFLOXACIN
     Indication: Dyspnoea
     Dosage: UNK
     Route: 065
     Dates: start: 20200115, end: 20200121
  8. LACTULOSE [Concomitant]
     Active Substance: LACTULOSE
     Indication: Dyspnoea
     Dosage: 15 ML
     Route: 065
     Dates: start: 20200113, end: 20200113
  9. LACTULOSE [Concomitant]
     Active Substance: LACTULOSE
     Dosage: 20 ML
     Route: 065
     Dates: start: 20200114
  10. SENNA [Concomitant]
     Active Substance: SENNA LEAF\SENNOSIDES\SENNOSIDES A AND B
     Indication: Dyspnoea
     Dosage: 2 TABLETS
     Route: 065
     Dates: start: 20200114
  11. DEVICE\XYLITOL [Concomitant]
     Active Substance: DEVICE\XYLITOL
     Indication: Dyspnoea
     Dosage: UNK
     Route: 065
     Dates: start: 20200114
  12. NYSTATIN [Concomitant]
     Active Substance: NYSTATIN
     Indication: Dyspnoea
     Dosage: UNK
     Route: 065
     Dates: start: 20200114
  13. SALINE [Concomitant]
     Active Substance: SODIUM CHLORIDE
     Indication: Dyspnoea
     Dosage: 0.9% 1000 ML
     Route: 065
     Dates: start: 20200114, end: 20200114
  14. SALINE [Concomitant]
     Active Substance: SODIUM CHLORIDE
     Indication: Prophylaxis
     Dosage: 0.99 % 5 MLS
     Route: 065
     Dates: start: 20200114, end: 20200206
  15. SALINE [Concomitant]
     Active Substance: SODIUM CHLORIDE
     Dosage: 0.9% 1000 ML
     Route: 065
     Dates: start: 20200116, end: 20200116
  16. SALINE [Concomitant]
     Active Substance: SODIUM CHLORIDE
     Dosage: 0.9% 1000 ML
     Route: 065
     Dates: start: 20200117, end: 20200117
  17. SALINE [Concomitant]
     Active Substance: SODIUM CHLORIDE
     Dosage: 0.9% 1000 ML
     Route: 065
     Dates: start: 20200202, end: 20200202
  18. ALBUTEROL [Concomitant]
     Active Substance: ALBUTEROL
     Indication: Dyspnoea
     Dosage: UNK
     Route: 065
     Dates: start: 20200114, end: 20200120
  19. IPRATROPIUM BROMIDE [Concomitant]
     Active Substance: IPRATROPIUM BROMIDE
     Indication: Dyspnoea
     Dosage: UNK
     Route: 065
     Dates: start: 20200115, end: 20200120
  20. PREDNISOLONE [Concomitant]
     Active Substance: PREDNISOLONE
     Indication: Dyspnoea
     Dosage: UNK
     Route: 065
     Dates: start: 20200116, end: 20200120
  21. OMEPRAZOLE [Concomitant]
     Active Substance: OMEPRAZOLE
     Indication: Dyspnoea
     Dosage: UNK
     Route: 065
     Dates: start: 20200118
  22. CARBOCYSTEINE [Concomitant]
     Active Substance: CARBOCYSTEINE
     Indication: Chest discomfort
     Dosage: 375 MG
     Route: 065
     Dates: start: 20191128
  23. CARBOCYSTEINE [Concomitant]
     Active Substance: CARBOCYSTEINE
     Indication: Dyspnoea
     Dosage: 750 MG
     Route: 065
     Dates: start: 20200114
  24. SANDO K [Concomitant]
     Indication: Dyspnoea
     Dosage: 1-2 TABLETS 3X/DAY
     Route: 065
     Dates: start: 20200120, end: 20200121
  25. SANDO K [Concomitant]
     Indication: Blood potassium decreased
  26. DOMPERIDONE [Concomitant]
     Active Substance: DOMPERIDONE
     Indication: Dyspnoea
     Dosage: UNK
     Route: 065
     Dates: start: 20200114, end: 20200114
  27. CODEINE PHOSPHATE [Concomitant]
     Active Substance: CODEINE PHOSPHATE
     Indication: Dyspnoea
     Dosage: 30-60 MG
     Route: 065
     Dates: start: 20200113, end: 20200113
  28. MORPHINE SULFATE [Concomitant]
     Active Substance: MORPHINE SULFATE
     Indication: Dyspnoea
     Dosage: 5-10 MG
     Route: 065
     Dates: start: 20200114, end: 20200114
  29. CALCIUM CHLORIDE\POTASSIUM CHLORIDE\SODIUM LACTATE [Concomitant]
     Active Substance: CALCIUM CHLORIDE\POTASSIUM CHLORIDE\SODIUM LACTATE
     Indication: Dyspnoea
     Dosage: UNK
     Route: 065
     Dates: start: 20200113, end: 20200113
  30. CALCIUM CHLORIDE\POTASSIUM CHLORIDE\SODIUM LACTATE [Concomitant]
     Active Substance: CALCIUM CHLORIDE\POTASSIUM CHLORIDE\SODIUM LACTATE
     Indication: Prophylaxis
     Dosage: UNK
     Route: 065
     Dates: start: 20200115, end: 20200115
  31. CALCIUM CHLORIDE\POTASSIUM CHLORIDE\SODIUM LACTATE [Concomitant]
     Active Substance: CALCIUM CHLORIDE\POTASSIUM CHLORIDE\SODIUM LACTATE
     Dosage: UNK
     Route: 065
     Dates: start: 20200202, end: 20200202
  32. ACETAMINOPHEN [Concomitant]
     Active Substance: ACETAMINOPHEN
     Indication: Chest pain
     Dosage: UNK
     Route: 065
     Dates: start: 20191121
  33. KCL + NACL 0.9% [Concomitant]
     Indication: Dyspnoea
     Dosage: 1000 ML (0.9%) +20MMOL
     Route: 065
     Dates: start: 20200117, end: 20200117
  34. KCL + NACL 0.9% [Concomitant]
     Dosage: 250 ML (0.9%) 20 MMOL
     Route: 065
     Dates: start: 20200120, end: 20200120
  35. DEXTROSE [Concomitant]
     Active Substance: DEXTROSE
     Indication: Prophylaxis
     Dosage: 1000 ML
     Route: 065
     Dates: start: 20200202, end: 20200202
  36. FOLIC ACID [Concomitant]
     Active Substance: FOLIC ACID
     Indication: Anaemia prophylaxis
     Dosage: UNK
     Route: 065
     Dates: start: 20191213
  37. FERROUS SULFATE [Concomitant]
     Active Substance: FERROUS SULFATE
     Indication: Haemoglobin decreased
     Dosage: UNK
     Route: 065
     Dates: start: 20191227
  38. FERROUS SULFATE [Concomitant]
     Active Substance: FERROUS SULFATE
     Indication: Haemoptysis
  39. SIMPLE LINCTUS [Concomitant]
     Active Substance: AMARANTH\CHLOROFORM\CITRIC ACID MONOHYDRATE\PIMPINELLA ANISUM WHOLE
     Indication: Dyspnoea
     Dosage: UNK
     Route: 065
     Dates: start: 20200120, end: 20200120

REACTIONS (1)
  - Atypical pneumonia [Recovered/Resolved]

NARRATIVE: CASE EVENT DATE: 20200202
